FAERS Safety Report 21959267 (Version 8)
Quarter: 2023Q2

REPORT INFORMATION
  Report Type: Report from Study
  Country: EG (occurrence: EG)
  Receive Date: 20230206
  Receipt Date: 20230403
  Transmission Date: 20230722
  Serious: Yes (Other)
  Sender: FDA-Public Use
  Company Number: EG-002147023-NVSC2023EG021982

PATIENT
  Age: 52 Year
  Sex: Female

DRUGS (10)
  1. GILENYA [Suspect]
     Active Substance: FINGOLIMOD HYDROCHLORIDE
     Indication: Multiple sclerosis
     Dosage: 1 DOSAGE FORM, QD (STARTED AT THE END OF 2019)
     Route: 048
     Dates: start: 2019
  2. EXFORGE [Suspect]
     Active Substance: AMLODIPINE BESYLATE\VALSARTAN
     Indication: Hypertension
     Dosage: QD, EVERY MORNING
     Route: 048
  3. GAPTIN [Concomitant]
     Indication: Nerve injury
     Dosage: QD, ONCE DAILY AT NIGHT (STARTED 5-6 YEARS AGO)
     Route: 065
  4. CA [Concomitant]
     Indication: Bone disorder
     Dosage: 1 DOSAGE FORM, QD
     Route: 065
     Dates: start: 2016
  5. VITAMIN D [Concomitant]
     Active Substance: VITAMIN D NOS
     Indication: Product used for unknown indication
     Dosage: UNK (ONE AMPOULE EVERY MONTH OR 6 TO 7 MONTHS)
     Route: 065
     Dates: start: 2018
  6. ONEALFA [Concomitant]
     Active Substance: ALFACALCIDOL
     Indication: Gait disturbance
     Dosage: UNK, QD
     Route: 065
     Dates: start: 2018
  7. GLICLAZIDE [Concomitant]
     Active Substance: GLICLAZIDE
     Indication: Hyperglycaemia
     Dosage: 1 DOSAGE FORM, QD, EVERY MORNING
     Route: 065
  8. LEVETIRACETAM [Concomitant]
     Active Substance: LEVETIRACETAM
     Indication: Feeling abnormal
     Dosage: 0.5 DOSAGE FORM, QD (AT NIGHT)
     Route: 065
  9. LEVETIRACETAM [Concomitant]
     Active Substance: LEVETIRACETAM
     Indication: Trigeminal neuralgia
  10. CONTROLOC [Concomitant]
     Active Substance: PANTOPRAZOLE SODIUM
     Indication: Abdominal discomfort
     Dosage: UNK, QD, EVERY MORNING
     Route: 065

REACTIONS (19)
  - Multiple sclerosis relapse [Unknown]
  - Musculoskeletal stiffness [Unknown]
  - Strabismus [Not Recovered/Not Resolved]
  - Urinary incontinence [Unknown]
  - Balance disorder [Unknown]
  - Disturbance in attention [Not Recovered/Not Resolved]
  - Pain [Unknown]
  - Angina pectoris [Unknown]
  - Electric shock sensation [Not Recovered/Not Resolved]
  - Abdominal pain upper [Unknown]
  - Speech disorder [Unknown]
  - Abscess [Unknown]
  - Motion sickness [Unknown]
  - Illness [Unknown]
  - Abnormal sensation in eye [Unknown]
  - Yellow skin [Unknown]
  - Dyspnoea [Unknown]
  - Fatigue [Not Recovered/Not Resolved]
  - Headache [Unknown]

NARRATIVE: CASE EVENT DATE: 20230128
